FAERS Safety Report 8572736-2 (Version None)
Quarter: 2012Q2

REPORT INFORMATION
  Report Type: 
  Country: None (occurrence: None)
  Receive Date: 20120420
  Receipt Date: 20110531
  Transmission Date: 20120825
  Serious: Yes (Hospitalization)
  Sender: FDA-Public Use
  Company Number: WAES 1106USA00018

PATIENT
  Age: 14 Year
  Sex: Female

DRUGS (2)
  1. SYMBICORT [Concomitant]
  2. SINGULAIR [Suspect]
     Indication: ASTHMA
     Dosage: 10 MG/DAILY/PO
     Route: 048
     Dates: start: 20110526, end: 20110530

REACTIONS (2)
  - CONVULSION [None]
  - OVERDOSE [None]
